FAERS Safety Report 11089847 (Version 2)
Quarter: 2015Q2

REPORT INFORMATION
  Report Type: Report from Study
  Country: JP (occurrence: None)
  Receive Date: 20150501
  Receipt Date: 20150501
  Transmission Date: 20150821
  Serious: Yes (Other)
  Sender: FDA-Public Use
  Company Number: 2015JP001706

PATIENT
  Age: 31 Year
  Sex: Female
  Weight: 43 kg

DRUGS (11)
  1. MYSLEE (ZOLPIDEM TARTRATE) [Concomitant]
  2. NEUROTROPIN /06251301/ (RABBIT VACCINIA EXTRACT) [Concomitant]
  3. CYMBALTA [Concomitant]
     Active Substance: DULOXETINE HYDROCHLORIDE
  4. LYRICA [Concomitant]
     Active Substance: PREGABALIN
  5. LOXONIN (LOXOPROFEN SODIUM) [Concomitant]
     Active Substance: LOXOPROFEN SODIUM
  6. NEO-MINOPHAGEN C (GLYCYRRHIZIC ACID, AMMONIUM SALT) [Concomitant]
  7. PARIET (RABEPRAZOLE SODIUM) [Concomitant]
  8. REGNITE (GABAPENTIN ENACARBIL) TABLET, 300MG [Suspect]
     Active Substance: GABAPENTIN ENACARBIL
     Indication: RESTLESS LEGS SYNDROME
     Route: 048
     Dates: start: 20130828, end: 20131218
  9. AMOBAN (ZOPICLONE) [Concomitant]
  10. CERCINE (DIAZEPAM) [Concomitant]
  11. LENDORMIN (BROTIZOLAM) [Concomitant]

REACTIONS (7)
  - Headache [None]
  - Insomnia [None]
  - Condition aggravated [None]
  - Urticaria [None]
  - Osteoarthritis [None]
  - Depression [None]
  - Abdominal discomfort [None]

NARRATIVE: CASE EVENT DATE: 201401
